FAERS Safety Report 8162669-8 (Version None)
Quarter: 2012Q1

REPORT INFORMATION
  Report Type: 
  Country: None (occurrence: None)
  Receive Date: 20120224
  Receipt Date: 20120210
  Transmission Date: 20120608
  Serious: Yes (Death, Hospitalization, Other)
  Sender: FDA-Public Use
  Company Number: CA-UCBSA-034469

PATIENT
  Age: 58 Year
  Sex: Female
  Weight: 96 kg

DRUGS (9)
  1. VITAMIN D [Concomitant]
  2. CIMZIA [Suspect]
     Indication: RHEUMATOID ARTHRITIS
     Route: 058
     Dates: start: 20100706, end: 20110526
  3. CELEBREX [Concomitant]
     Indication: RHEUMATOID ARTHRITIS
     Route: 048
     Dates: start: 20110101, end: 20110712
  4. FOLIC ACID [Concomitant]
     Dosage: DAILY
     Dates: start: 20080101
  5. ASPIRIN [Concomitant]
     Dates: start: 20080101
  6. PREVACID [Concomitant]
     Indication: GASTRITIS PROPHYLAXIS
     Route: 048
     Dates: end: 20110712
  7. METFORMIN HCL [Concomitant]
     Indication: DIABETES MELLITUS
     Route: 048
     Dates: end: 20110712
  8. ATACAND HCT [Concomitant]
     Indication: HYPERTENSION
     Dosage: 16/125 MG
     Route: 048
     Dates: end: 20110712
  9. METHOTREXATE [Concomitant]
     Indication: RHEUMATOID ARTHRITIS
     Route: 048
     Dates: start: 20090520, end: 20110526

REACTIONS (3)
  - ABDOMINAL PAIN [None]
  - ADENOCARCINOMA [None]
  - HEPATIC ENZYME INCREASED [None]
